FAERS Safety Report 23298038 (Version 2)
Quarter: 2025Q2

REPORT INFORMATION
  Report Type: Spontaneous
  Country: CA (occurrence: CA)
  Receive Date: 20231214
  Receipt Date: 20250519
  Transmission Date: 20250716
  Serious: Yes (Hospitalization, Other)
  Sender: TAKEDA
  Company Number: CA-TAKEDA-2023TUS119669

PATIENT
  Age: 41 Year
  Sex: Female
  Weight: 102 kg

DRUGS (3)
  1. HUMAN IMMUNOGLOBULIN G [Suspect]
     Active Substance: HUMAN IMMUNOGLOBULIN G
     Indication: Immune thrombocytopenia
     Dosage: 80 GRAM, QD
     Dates: start: 20230707
  2. HUMAN IMMUNOGLOBULIN G [Suspect]
     Active Substance: HUMAN IMMUNOGLOBULIN G
     Dosage: 80 GRAM, QD
     Dates: start: 20230713
  3. HUMAN IMMUNOGLOBULIN G [Suspect]
     Active Substance: HUMAN IMMUNOGLOBULIN G
     Dosage: 80 GRAM, QD
     Dates: start: 20230716, end: 20230716

REACTIONS (6)
  - Delayed haemolytic transfusion reaction [Recovering/Resolving]
  - Coombs direct test positive [Recovering/Resolving]
  - Anti A antibody positive [Recovering/Resolving]
  - Anti B antibody positive [Recovering/Resolving]
  - Haptoglobin decreased [Recovering/Resolving]
  - Spherocytic anaemia [Recovering/Resolving]

NARRATIVE: CASE EVENT DATE: 20230717
